FAERS Safety Report 6954847-8 (Version None)
Quarter: 2010Q3

REPORT INFORMATION
  Report Type: 
  Country: None (occurrence: None)
  Receive Date: 20100830
  Receipt Date: 20100818
  Transmission Date: 20110219
  Serious: Yes (Other)
  Sender: FDA-Public Use
  Company Number: US-CELGENEUS-163-20785-10051553

PATIENT
  Sex: Female

DRUGS (12)
  1. THALOMID [Suspect]
     Indication: MULTIPLE MYELOMA
     Route: 048
     Dates: start: 20080409
  2. THALOMID [Suspect]
     Dosage: 100-200 MG
     Route: 048
     Dates: start: 20060401
  3. THALOMID [Suspect]
     Route: 048
     Dates: start: 20061121
  4. ZOMETA [Suspect]
     Indication: PRODUCT USED FOR UNKNOWN INDICATION
     Route: 065
  5. COUMADIN [Concomitant]
     Route: 048
  6. COUMADIN [Concomitant]
     Route: 048
  7. LORAZEPAM [Concomitant]
     Indication: ANXIETY
     Route: 048
  8. LORAZEPAM [Concomitant]
     Route: 048
  9. LORTAB [Concomitant]
     Indication: PAIN
     Route: 065
  10. LORTAB [Concomitant]
  11. ALBUTEROL [Concomitant]
     Indication: PRODUCT USED FOR UNKNOWN INDICATION
     Dosage: 2 PUFFS
     Route: 065
  12. SALINE MIST [Concomitant]
     Indication: PRODUCT USED FOR UNKNOWN INDICATION
     Route: 065

REACTIONS (4)
  - MASTOIDITIS [None]
  - NEUROPATHY PERIPHERAL [None]
  - OSTEONECROSIS [None]
  - TOOTH INJURY [None]
